FAERS Safety Report 5235157-6 (Version None)
Quarter: 2007Q1

REPORT INFORMATION
  Report Type: 
  Country: None (occurrence: None)
  Receive Date: 20070207
  Receipt Date: 20070201
  Transmission Date: 20070707
  Serious: Yes (Other)
  Sender: FDA-Public Use
  Company Number: GXKR2007DE01253

PATIENT
  Age: 65 Year
  Sex: Female

DRUGS (2)
  1. CEFTRIAXONE [Suspect]
     Dosage: PARENTERAL
     Route: 051
  2. METRONIDAZOLE [Suspect]
     Dosage: ORAL
     Route: 048

REACTIONS (1)
  - PSEUDOMEMBRANOUS COLITIS [None]
